FAERS Safety Report 13702426 (Version 1)
Quarter: 2017Q2

REPORT INFORMATION
  Report Type: Spontaneous
  Country: US (occurrence: US)
  Receive Date: 20170629
  Receipt Date: 20170629
  Transmission Date: 20170830
  Serious: No
  Sender: FDA-Public Use
  Company Number: US-IPSEN BIOPHARMACEUTICALS, INC.-2016-02107

PATIENT
  Age: 8 Year
  Sex: Female
  Weight: 16.32 kg

DRUGS (2)
  1. INCRELEX [Suspect]
     Active Substance: MECASERMIN
     Indication: HYPOPITUITARISM
     Route: 058
     Dates: start: 201512
  2. INCRELEX [Suspect]
     Active Substance: MECASERMIN
     Indication: PRODUCT USE IN UNAPPROVED INDICATION

REACTIONS (3)
  - Eye pruritus [Recovered/Resolved]
  - Nausea [Recovered/Resolved]
  - Urticaria [Recovered/Resolved]

NARRATIVE: CASE EVENT DATE: 201602
